FAERS Safety Report 12335253 (Version 4)
Quarter: 2016Q2

REPORT INFORMATION
  Report Type: Report from Study
  Country: DE (occurrence: DE)
  Receive Date: 20160504
  Receipt Date: 20160608
  Transmission Date: 20160815
  Serious: Yes (Hospitalization, Other)
  Sender: FDA-Public Use
  Company Number: DE-GILEAD-2016-0211038

PATIENT
  Age: 60 Year
  Sex: Female
  Weight: 82 kg

DRUGS (9)
  1. SOFOSBUVIR [Suspect]
     Active Substance: SOFOSBUVIR
     Indication: CHRONIC HEPATITIS C
     Dosage: 400 MG, QD
     Route: 048
     Dates: start: 20150630, end: 20150924
  2. LAFAMME [Concomitant]
     Indication: PRODUCT USED FOR UNKNOWN INDICATION
     Dosage: 0.5 MG, UNK
     Route: 065
  3. COPEGUS [Suspect]
     Active Substance: RIBAVIRIN
     Indication: CHRONIC HEPATITIS C
     Dosage: 1200 MG, QD
     Route: 048
     Dates: start: 20150630, end: 20150924
  4. ALVESCO [Concomitant]
     Active Substance: CICLESONIDE
     Indication: PRODUCT USED FOR UNKNOWN INDICATION
     Dosage: 160 UG, UNK
     Route: 065
  5. COPEGUS [Suspect]
     Active Substance: RIBAVIRIN
     Dosage: 600 MG, QD
     Route: 048
     Dates: start: 20150630, end: 20150924
  6. FORAIR                             /00958002/ [Concomitant]
     Indication: PRODUCT USED FOR UNKNOWN INDICATION
     Dosage: UNK
     Route: 065
  7. PANTOZOL [Concomitant]
     Active Substance: PANTOPRAZOLE SODIUM
     Indication: PRODUCT USED FOR UNKNOWN INDICATION
     Dosage: UNK UNK, PRN
     Route: 065
  8. BUDIAIR [Concomitant]
     Indication: PRODUCT USED FOR UNKNOWN INDICATION
     Dosage: 200 UG, UNK
     Route: 065
  9. NEBILET [Concomitant]
     Active Substance: NEBIVOLOL
     Indication: PRODUCT USED FOR UNKNOWN INDICATION
     Dosage: 5 MG, UNK
     Route: 065

REACTIONS (5)
  - Vertigo [Recovered/Resolved]
  - Pneumonia [Recovered/Resolved]
  - Migraine with aura [Recovered/Resolved]
  - Urinary tract infection [Recovered/Resolved]
  - Fall [Recovered/Resolved]

NARRATIVE: CASE EVENT DATE: 20150717
